FAERS Safety Report 7556851-8 (Version None)
Quarter: 2011Q2

REPORT INFORMATION
  Report Type: 
  Country: None (occurrence: None)
  Receive Date: 20110620
  Receipt Date: 20110616
  Transmission Date: 20111010
  Serious: Yes (Other)
  Sender: FDA-Public Use
  Company Number: US-PFIZER INC-2011132812

PATIENT
  Sex: Female
  Weight: 84 kg

DRUGS (12)
  1. CHANTIX [Suspect]
     Indication: SMOKING CESSATION THERAPY
     Dosage: UNK
     Route: 048
     Dates: start: 20100101
  2. XOPENEX [Concomitant]
     Dosage: UNK
  3. MONTELUKAST SODIUM [Concomitant]
     Dosage: UNK
  4. KLOR-CON [Concomitant]
     Indication: BLOOD POTASSIUM
     Dosage: UNK
  5. LASIX [Concomitant]
     Indication: DIURETIC THERAPY
     Dosage: UNK
  6. NIFEDIPINE [Concomitant]
     Indication: HYPERTENSION
     Dosage: UNK
  7. CHANTIX [Suspect]
     Dosage: UNK
     Dates: start: 20110616
  8. TRILEPTAL [Concomitant]
     Indication: AFFECT LABILITY
     Dosage: UNK
  9. TRAVATAN [Concomitant]
     Indication: GLAUCOMA
     Dosage: UNK
  10. HYDROXYZINE [Concomitant]
     Indication: DEPRESSION
     Dosage: UNK
  11. AMBIEN [Concomitant]
     Indication: SLEEP DISORDER
     Dosage: UNK
  12. BENAZEPRIL [Concomitant]
     Indication: HYPERTENSION
     Dosage: UNK

REACTIONS (6)
  - PERSONALITY CHANGE [None]
  - ABNORMAL DREAMS [None]
  - ERYTHEMA [None]
  - AGITATION [None]
  - OROPHARYNGEAL BLISTERING [None]
  - HOMICIDAL IDEATION [None]
